FAERS Safety Report 15550322 (Version 1)
Quarter: 2018Q4

REPORT INFORMATION
  Report Type: Spontaneous
  Country: US (occurrence: US)
  Receive Date: 20181025
  Receipt Date: 20181025
  Transmission Date: 20190205
  Serious: Yes (Other)
  Sender: FDA-Public Use
  Company Number: US-GLAXOSMITHKLINE-US2018190910

PATIENT
  Age: 67 Year
  Sex: Male

DRUGS (2)
  1. ANORO ELLIPTA [Suspect]
     Active Substance: UMECLIDINIUM BROMIDE\VILANTEROL TRIFENATATE
     Indication: CHRONIC OBSTRUCTIVE PULMONARY DISEASE
     Dosage: 1 PUFF(S), QD
  2. VENTOLIN HFA [Suspect]
     Active Substance: ALBUTEROL SULFATE
     Indication: DYSPNOEA
     Dosage: 2 PUFF(S), QID

REACTIONS (5)
  - Malignant neoplasm progression [Recovering/Resolving]
  - Cancer surgery [Recovering/Resolving]
  - Radiotherapy [Unknown]
  - Lung neoplasm malignant [Recovering/Resolving]
  - Rectal cancer [Recovering/Resolving]

NARRATIVE: CASE EVENT DATE: 201712
